FAERS Safety Report 7906298-7 (Version None)
Quarter: 2011Q4

REPORT INFORMATION
  Report Type: 
  Country: None (occurrence: None)
  Receive Date: 20111109
  Receipt Date: 20111109
  Transmission Date: 20120403
  Serious: No
  Sender: FDA-Public Use
  Company Number: None

PATIENT
  Sex: Female
  Weight: 70.3075 kg

DRUGS (2)
  1. FANAPT [Suspect]
     Indication: SCHIZOPHRENIA
     Dosage: 6 MG BID TWICE DAY MOUTH
     Route: 048
     Dates: start: 20110909, end: 20111011
  2. FANAPT [Suspect]
     Indication: BIPOLAR DISORDER
     Dosage: 6 MG BID TWICE DAY MOUTH
     Route: 048
     Dates: start: 20110909, end: 20111011

REACTIONS (2)
  - INCREASED APPETITE [None]
  - WEIGHT INCREASED [None]
